FAERS Safety Report 24101284 (Version 1)
Quarter: 2024Q3

REPORT INFORMATION
  Report Type: Spontaneous
  Country: US (occurrence: US)
  Receive Date: 20240717
  Receipt Date: 20240717
  Transmission Date: 20241017
  Serious: No
  Sender: NOVO NORDISK
  Company Number: US-NOVOPROD-1188117

PATIENT
  Sex: Female

DRUGS (2)
  1. OZEMPIC [Suspect]
     Active Substance: SEMAGLUTIDE
     Indication: Weight control
  2. OZEMPIC [Suspect]
     Active Substance: SEMAGLUTIDE
     Indication: Glucose tolerance impaired
     Dosage: 0.25 MG
     Route: 058
     Dates: start: 202309

REACTIONS (5)
  - Illness [Unknown]
  - Gastrooesophageal reflux disease [Unknown]
  - Off label use [Not Recovered/Not Resolved]
  - Inappropriate schedule of product administration [Not Recovered/Not Resolved]
  - Product packaging quantity issue [Not Recovered/Not Resolved]
